FAERS Safety Report 9009013 (Version 1)
Quarter: 2013Q1

REPORT INFORMATION
  Report Type: Spontaneous
  Country: US (occurrence: US)
  Receive Date: 20130111
  Receipt Date: 20130111
  Transmission Date: 20140127
  Serious: Yes (Other)
  Sender: FDA-Public Use
  Company Number: US-PFIZER INC-2013013051

PATIENT
  Age: 28 Year
  Sex: Male
  Weight: 127 kg

DRUGS (2)
  1. NEURONTIN [Suspect]
     Indication: FIBROMYALGIA
     Dosage: 600 MG, 3X/DAY
     Dates: start: 2011
  2. ACCURETIC [Suspect]
     Indication: BLOOD PRESSURE ABNORMAL
     Dosage: 20/25 MG, TWO TABLETS DAILY
     Dates: start: 2012

REACTIONS (7)
  - Spinal fracture [Unknown]
  - Pain [Not Recovered/Not Resolved]
  - Gait disturbance [Not Recovered/Not Resolved]
  - Osteoarthritis [Not Recovered/Not Resolved]
  - Insomnia [Not Recovered/Not Resolved]
  - Paraesthesia [Not Recovered/Not Resolved]
  - Hypoaesthesia [Not Recovered/Not Resolved]
